FAERS Safety Report 8294447-3 (Version None)
Quarter: 2012Q2

REPORT INFORMATION
  Report Type: 
  Country: None (occurrence: None)
  Receive Date: 20120418
  Receipt Date: 20120412
  Transmission Date: 20120825
  Serious: Yes (Hospitalization)
  Sender: FDA-Public Use
  Company Number: PHHO2012US005813

PATIENT
  Sex: Male

DRUGS (3)
  1. AFINITOR [Suspect]
     Indication: TRANSITIONAL CELL CARCINOMA
     Dosage: 800 MG/M2, D1/D8
     Route: 048
     Dates: start: 20120403, end: 20120409
  2. GEMCITABINE [Suspect]
     Indication: TRANSITIONAL CELL CARCINOMA
     Dosage: 800 MG/M2 D1/D8
     Dates: start: 20120403, end: 20120409
  3. CISPLATIN [Suspect]
     Indication: TRANSITIONAL CELL CARCINOMA
     Dosage: 35 MG/M2 D1/D8
     Dates: start: 20120403, end: 20120409

REACTIONS (2)
  - ATELECTASIS [None]
  - PLEURAL EFFUSION [None]
